FAERS Safety Report 14959374 (Version 4)
Quarter: 2018Q4

REPORT INFORMATION
  Report Type: Report from Study
  Country: US (occurrence: US)
  Receive Date: 20180531
  Receipt Date: 20181022
  Transmission Date: 20190204
  Serious: No
  Sender: FDA-Public Use
  Company Number: US-INCYTE CORPORATION-2018IN004160

PATIENT

DRUGS (1)
  1. JAKAFI [Suspect]
     Active Substance: RUXOLITINIB
     Indication: MYELOFIBROSIS
     Dosage: 20 MG, BID
     Route: 048
     Dates: start: 20180417

REACTIONS (10)
  - Platelet count abnormal [Recovered/Resolved]
  - Product dose omission [Unknown]
  - Sinus congestion [Recovering/Resolving]
  - Platelet count increased [Recovered/Resolved]
  - Blood cholesterol increased [Unknown]
  - White blood cell count abnormal [Recovered/Resolved]
  - Furuncle [Recovering/Resolving]
  - Body temperature increased [Recovering/Resolving]
  - White blood cell count decreased [Recovered/Resolved]
  - Scab [Recovering/Resolving]

NARRATIVE: CASE EVENT DATE: 201804
